FAERS Safety Report 8172051-5 (Version None)
Quarter: 2012Q1

REPORT INFORMATION
  Report Type: 
  Country: None (occurrence: None)
  Receive Date: 20120228
  Receipt Date: 20120220
  Transmission Date: 20120608
  Serious: Yes (Other)
  Sender: FDA-Public Use
  Company Number: BR-ASTRAZENECA-2012SE12131

PATIENT
  Age: 62 Year
  Sex: Male
  Weight: 70 kg

DRUGS (5)
  1. CRESTOR [Suspect]
     Route: 048
     Dates: start: 20111201
  2. ALDACTONE [Concomitant]
     Route: 048
     Dates: start: 20111201
  3. BRILINTA [Suspect]
     Indication: MYOCARDIAL INFARCTION
     Dosage: BID
     Route: 048
  4. FUROSEMIDE [Concomitant]
     Route: 048
     Dates: start: 20111201
  5. ASPIRIN [Concomitant]
     Route: 048
     Dates: start: 20111201

REACTIONS (1)
  - DIABETES MELLITUS [None]
